FAERS Safety Report 12093662 (Version 1)
Quarter: 2016Q1

REPORT INFORMATION
  Report Type: Spontaneous
  Country: SN (occurrence: SN)
  Receive Date: 20160219
  Receipt Date: 20160219
  Transmission Date: 20160526
  Serious: Yes (Death, Other)
  Sender: FDA-Public Use
  Company Number: SN-IMPAX LABORATORIES, INC-2016-IPXL-00172

PATIENT
  Age: 43 Year
  Sex: Female
  Weight: 53 kg

DRUGS (3)
  1. URSODIOL. [Suspect]
     Active Substance: URSODIOL
     Dosage: 1200 MG, DAILY
     Route: 065
  2. CHOLESTYRAMINE. [Concomitant]
     Active Substance: CHOLESTYRAMINE
     Indication: BILIARY CIRRHOSIS PRIMARY
     Dosage: 12 G, DAILY
     Route: 065
  3. URSODIOL. [Suspect]
     Active Substance: URSODIOL
     Indication: BILIARY CIRRHOSIS PRIMARY
     Dosage: 800 MG, DAILY
     Route: 065

REACTIONS (3)
  - Condition aggravated [Not Recovered/Not Resolved]
  - Hepatic encephalopathy [Fatal]
  - Colitis ulcerative [Recovered/Resolved]
